FAERS Safety Report 9685852 (Version 1)
Quarter: 2013Q4

REPORT INFORMATION
  Report Type: Report from Study
  Country: US (occurrence: US)
  Receive Date: 20131113
  Receipt Date: 20131113
  Transmission Date: 20140711
  Serious: Yes (Other)
  Sender: FDA-Public Use
  Company Number: US-ROCHE-1299838

PATIENT
  Age: 61 Year
  Sex: Female

DRUGS (18)
  1. XELODA [Suspect]
     Indication: METASTASES TO BONE
     Dosage: PO BID X 14DAYS OFF 7DAYS, RECYCLE Q21 DAYS
     Route: 048
  2. XELODA [Suspect]
     Indication: THROMBOCYTOPENIA
  3. XELODA [Suspect]
     Indication: BREAST CANCER
  4. FENTANYL [Concomitant]
     Dosage: AS DIRECTED
     Route: 062
  5. FOLATE [Concomitant]
     Route: 048
  6. HYDROCODONE/ACETAMINOPHEN [Concomitant]
     Indication: PAIN
     Dosage: 10- 500 MG,   PO SOLID  PRN
     Route: 048
  7. KLONOPIN [Concomitant]
     Route: 048
  8. METFORMIN HYDROCHLORIDE [Concomitant]
     Dosage: PO SOLID
     Route: 048
  9. ATENOLOL [Concomitant]
     Route: 048
  10. BUSPAR [Concomitant]
     Route: 048
  11. GEMFIBROZIL [Concomitant]
     Route: 048
  12. HYDROMORPHONE HCL [Concomitant]
     Indication: PAIN
     Route: 048
  13. LIDODERM [Concomitant]
     Dosage: 5 (700 MG),  1 PATCH TOPICAL AS DIRECTED
     Route: 061
  14. LYRICA [Concomitant]
     Dosage: 2 TABS Q MORNING 3 TABS AT NIGHT
     Route: 065
  15. NOVOLOG [Concomitant]
     Dosage: 12 UNITS TID WITH MEALS
     Route: 058
  16. PRILOSEC [Concomitant]
     Route: 048
  17. PROCHLORPERAZINE MALEATE [Concomitant]
     Indication: NAUSEA
     Dosage: PRN
     Route: 065
  18. RAMIPRIL [Concomitant]
     Route: 065

REACTIONS (1)
  - Immune thrombocytopenic purpura [Unknown]
